FAERS Safety Report 7897854-3 (Version None)
Quarter: 2011Q4

REPORT INFORMATION
  Report Type: 
  Country: None (occurrence: None)
  Receive Date: 20111107
  Receipt Date: 20111103
  Transmission Date: 20120403
  Serious: Yes (Death, Hospitalization, Other)
  Sender: FDA-Public Use
  Company Number: PHHY2011VE097364

PATIENT
  Sex: Female

DRUGS (5)
  1. METHOTREXATE [Concomitant]
     Indication: ARTHRITIS
     Dosage: 1 DF
  2. GLUCOFAGE [Concomitant]
     Dosage: 1 DF,
  3. IBUPROFEN [Concomitant]
     Indication: PAIN
     Dosage: 1 DF
  4. OMEPRAZOLE [Concomitant]
     Indication: GASTRIC DISORDER
     Dosage: 1 DF
  5. ZOLEDRONOC ACID [Suspect]
     Indication: OSTEOPOROSIS
     Dosage: 5 MG
     Route: 042
     Dates: start: 20100901

REACTIONS (12)
  - NERVE COMPRESSION [None]
  - RESPIRATORY ARREST [None]
  - PNEUMONIA [None]
  - SPINAL COLUMN INJURY [None]
  - PAIN IN EXTREMITY [None]
  - VOMITING [None]
  - ABASIA [None]
  - DECREASED APPETITE [None]
  - ARTHRITIS [None]
  - DIABETES MELLITUS [None]
  - BULIMIA NERVOSA [None]
  - IMMUNOSUPPRESSION [None]
